FAERS Safety Report 4884949-1 (Version None)
Quarter: 2006Q1

REPORT INFORMATION
  Report Type: 
  Country: None (occurrence: None)
  Receive Date: 20060119
  Receipt Date: 20060103
  Transmission Date: 20060701
  Serious: Yes (Hospitalization)
  Sender: FDA-Public Use
  Company Number: FR-AVENTIS-200610033FR

PATIENT
  Age: 55 Year
  Sex: Female

DRUGS (9)
  1. FLAGYL [Suspect]
     Indication: DIVERTICULITIS
     Route: 048
     Dates: start: 20051107
  2. FLAGYL [Suspect]
     Route: 048
     Dates: start: 20051101, end: 20060102
  3. LOVENOX [Concomitant]
     Dates: start: 20051229
  4. ISOPTIN SR [Concomitant]
     Route: 048
  5. ATACAND [Concomitant]
     Route: 048
  6. XANAX [Concomitant]
     Route: 048
  7. PREVISCAN [Concomitant]
     Route: 048
     Dates: start: 20051230
  8. PREVISCAN [Concomitant]
     Route: 048
  9. AUGMENTIN '125' [Concomitant]
     Dates: end: 20051101

REACTIONS (10)
  - AMNESIA [None]
  - BLOOD URINE PRESENT [None]
  - CONFUSIONAL STATE [None]
  - DIZZINESS [None]
  - DYSGEUSIA [None]
  - HOT FLUSH [None]
  - LEUKOCYTURIA [None]
  - MUSCULOSKELETAL CHEST PAIN [None]
  - NEURALGIA [None]
  - PHLEBITIS [None]
